FAERS Safety Report 8122982-7 (Version None)
Quarter: 2012Q1

REPORT INFORMATION
  Report Type: 
  Country: None (occurrence: None)
  Receive Date: 20120208
  Receipt Date: 20120201
  Transmission Date: 20120608
  Serious: Yes (Other)
  Sender: FDA-Public Use
  Company Number: US-PFIZER INC-2012028352

PATIENT
  Sex: Male

DRUGS (3)
  1. DEXILANT [Concomitant]
     Dosage: 60 MG, 1X/DAY
  2. CELEBREX [Suspect]
     Indication: OSTEOARTHRITIS
     Dosage: 200 MG, 1X/DAY
     Route: 048
     Dates: start: 20090101, end: 20120101
  3. LISINOPRIL AND HYDROCHLOROTHIAZIDE [Concomitant]
     Indication: HYPERTENSION
     Dosage: UNK

REACTIONS (4)
  - COLITIS MICROSCOPIC [None]
  - ARTHRALGIA [None]
  - STRESS [None]
  - DIARRHOEA [None]
